FAERS Safety Report 12950158 (Version 1)
Quarter: 2016Q4

REPORT INFORMATION
  Report Type: Spontaneous
  Country: US (occurrence: US)
  Receive Date: 20161117
  Receipt Date: 20161117
  Transmission Date: 20170207
  Serious: Yes (Other)
  Sender: FDA-Public Use
  Company Number: US-BRISTOL-MYERS SQUIBB COMPANY-BMS-2016-095846

PATIENT
  Sex: Female
  Weight: 72.5 kg

DRUGS (2)
  1. OPDIVO [Suspect]
     Active Substance: NIVOLUMAB
     Indication: SQUAMOUS CELL CARCINOMA
     Dosage: UNK, Q2WK
     Route: 042
     Dates: start: 201511, end: 20161021
  2. LEVOTHYROXINE. [Concomitant]
     Active Substance: LEVOTHYROXINE
     Indication: PRODUCT USED FOR UNKNOWN INDICATION
     Dosage: 50 ?G, UNK
     Route: 065

REACTIONS (7)
  - Nausea [Unknown]
  - Product use issue [Unknown]
  - Fatigue [Unknown]
  - Arthralgia [Unknown]
  - Groin pain [Unknown]
  - Eye operation [Unknown]
  - Pain in extremity [Unknown]
